FAERS Safety Report 26069310 (Version 2)
Quarter: 2025Q4

REPORT INFORMATION
  Report Type: Spontaneous
  Country: EU (occurrence: EU)
  Receive Date: 20251120
  Receipt Date: 20251219
  Transmission Date: 20260118
  Serious: Yes (Other)
  Sender: BAUSCH AND LOMB
  Company Number: EU-TEVA-VS-3389573

PATIENT
  Age: 29 Year
  Sex: Male

DRUGS (10)
  1. HYDROCORTISONE [Suspect]
     Active Substance: HYDROCORTISONE
     Indication: Deafness neurosensory
     Dosage: 100 MG TWICE DAILY
     Route: 042
  2. MANNITOL [Suspect]
     Active Substance: MANNITOL
     Indication: Deafness neurosensory
     Route: 065
  3. OMEPRAZOLE [Suspect]
     Active Substance: OMEPRAZOLE
     Indication: Deafness neurosensory
     Route: 042
  4. CYANOCOBALAMIN\PYRIDOXINE\THIAMINE [Suspect]
     Active Substance: CYANOCOBALAMIN\PYRIDOXINE\THIAMINE
     Indication: Deafness neurosensory
     Dosage: VITAMIN B SUPPLEMENTATION (B1 100 MG, B6 200 MG, AND B12 0.2 MG, 3 TIMES DAILY)
     Route: 048
  5. DEXAMETHASONE [Concomitant]
     Active Substance: DEXAMETHASONE
     Indication: Deafness neurosensory
     Dosage: DEXONA 30
     Route: 048
  6. DEXAMETHASONE [Concomitant]
     Active Substance: DEXAMETHASONE
     Dosage: TAPER TO 1 MG TWICE DAILY AT THE TIME OF ADMISSION.
  7. SILDENAFIL [Concomitant]
     Active Substance: SILDENAFIL
     Indication: Sexual dysfunction
     Dosage: 10-20 MG DAILY OR EVERY OTHER DAY FOR APPROXIMATELY 3 WEEKS BEFORE DEVELOPING HEARING LOSS
  8. DAPOXETINE [Concomitant]
     Active Substance: DAPOXETINE
     Indication: Sexual dysfunction
  9. DAPOXETINE [Concomitant]
     Active Substance: DAPOXETINE
     Dosage: PRIOR TO SEXUAL ACTIVITY
  10. VITAMIN C [Concomitant]
     Active Substance: ASCORBIC ACID
     Indication: Product used for unknown indication

REACTIONS (1)
  - Therapy partial responder [Unknown]
